FAERS Safety Report 5186775-5 (Version None)
Quarter: 2006Q4

REPORT INFORMATION
  Report Type: 
  Country: None (occurrence: None)
  Receive Date: 20061220
  Receipt Date: 20060923
  Transmission Date: 20070319
  Serious: No
  Sender: FDA-Public Use
  Company Number: US-AMGEN-US194689

PATIENT
  Sex: Male

DRUGS (2)
  1. ENBREL [Suspect]
     Indication: RHEUMATOID ARTHRITIS
     Route: 058
     Dates: start: 20030301
  2. METHOTREXATE [Concomitant]
     Route: 048

REACTIONS (3)
  - FATIGUE [None]
  - JOINT SWELLING [None]
  - OSTEOPOROSIS [None]
